FAERS Safety Report 11377616 (Version 2)
Quarter: 2015Q3

REPORT INFORMATION
  Report Type: Spontaneous
  Country: US (occurrence: US)
  Receive Date: 20150811
  Receipt Date: 20150903
  Transmission Date: 20151125
  Serious: No
  Sender: FDA-Public Use
  Company Number: US-ELI_LILLY_AND_COMPANY-US200904003513

PATIENT
  Sex: Female

DRUGS (4)
  1. HUMALOG [Suspect]
     Active Substance: INSULIN LISPRO
     Dosage: UNK, UNK
     Dates: start: 200904
  2. HUMULIN L [Suspect]
     Active Substance: INSULIN HUMAN
     Dates: start: 1989
  3. HUMULIN R [Suspect]
     Active Substance: INSULIN HUMAN
     Dates: start: 1989
  4. LANTUS [Concomitant]
     Active Substance: INSULIN GLARGINE

REACTIONS (2)
  - Blood glucose increased [Not Recovered/Not Resolved]
  - Blood glucose decreased [Not Recovered/Not Resolved]

NARRATIVE: CASE EVENT DATE: 1989
